FAERS Safety Report 4508950-2 (Version None)
Quarter: 2004Q4

REPORT INFORMATION
  Report Type: 
  Country: None (occurrence: None)
  Receive Date: 20041123
  Receipt Date: 20041022
  Transmission Date: 20050328
  Serious: Yes (Other)
  Sender: FDA-Public Use
  Company Number: 001#2#2004-00210

PATIENT
  Age: 7 Year
  Sex: Male

DRUGS (1)
  1. SULTANOL [Suspect]
     Indication: BRONCHITIS
     Dosage: 1PUFF UNKNOWN
     Route: 055

REACTIONS (3)
  - ABNORMAL CHEST SOUND [None]
  - ANGIONEUROTIC OEDEMA [None]
  - RASH [None]
